FAERS Safety Report 7346653-X (Version None)
Quarter: 2011Q1

REPORT INFORMATION
  Report Type: 
  Country: None (occurrence: None)
  Receive Date: 20110311
  Receipt Date: 20110301
  Transmission Date: 20110831
  Serious: Yes (Hospitalization, Disabling)
  Sender: FDA-Public Use
  Company Number: JP-AMGEN-JPNCT2010010217

PATIENT
  Age: 69 Year
  Sex: Male
  Weight: 62 kg

DRUGS (7)
  1. DECADRON [Concomitant]
     Indication: PROPHYLAXIS
     Route: 041
     Dates: start: 20101124, end: 20101124
  2. ISOVORIN [Concomitant]
     Indication: COLORECTAL CANCER
     Route: 041
     Dates: start: 20101124, end: 20101124
  3. ALOXI [Concomitant]
     Indication: PROPHYLAXIS
     Route: 041
     Dates: start: 20101124, end: 20101124
  4. PANITUMUMAB [Suspect]
     Indication: COLORECTAL CANCER
     Dosage: 372 MG, Q2WK
     Route: 041
     Dates: start: 20101124, end: 20101124
  5. TOPOTECAN [Concomitant]
     Indication: COLORECTAL CANCER
     Dosage: 296 MG, Q2WK
     Route: 041
     Dates: start: 20101124, end: 20101124
  6. 5-FU [Concomitant]
     Dosage: 4125 MG, Q2WK
     Route: 041
     Dates: start: 20101124, end: 20101124
  7. 5-FU [Concomitant]
     Indication: COLORECTAL CANCER
     Dosage: 650 MG, Q2WK
     Route: 040
     Dates: start: 20101124, end: 20101124

REACTIONS (3)
  - DIARRHOEA [None]
  - CEREBRAL INFARCTION [None]
  - WHITE BLOOD CELL COUNT DECREASED [None]
